FAERS Safety Report 19985440 (Version 4)
Quarter: 2022Q4

REPORT INFORMATION
  Report Type: Spontaneous
  Country: US (occurrence: US)
  Receive Date: 20211021
  Receipt Date: 20221231
  Transmission Date: 20230112
  Serious: No
  Sender: FDA-Public Use
  Company Number: US-PFIZER INC-2020170228

PATIENT
  Age: 73 Year
  Sex: Female
  Weight: 68.95 kg

DRUGS (1)
  1. ESTRING [Suspect]
     Active Substance: ESTRADIOL
     Indication: Vulvovaginal dryness
     Dosage: 1 DF, EVERY 3 MONTHS (INSERT ONE RING VAGINALLY EVERY 90 DAYS)
     Route: 067

REACTIONS (1)
  - Memory impairment [Unknown]
